FAERS Safety Report 8968395 (Version 1)
Quarter: 2012Q4

REPORT INFORMATION
  Report Type: 
  Country: US (occurrence: US)
  Receive Date: 20121217
  Receipt Date: 20121217
  Transmission Date: 20130627
  Serious: Yes (Other)
  Sender: FDA-Public Use
  Company Number: US-PFIZER INC-2012318517

PATIENT
  Age: 32 Year
  Sex: Female
  Weight: 72.56 kg

DRUGS (13)
  1. GABAPENTIN [Suspect]
     Indication: FIBROMYALGIA
     Dosage: 100 mg, 3x/day
     Dates: start: 2010
  2. DIFLUCAN [Suspect]
     Indication: INFECTION
     Dosage: UNK, as needed
  3. XANAX [Suspect]
     Indication: ANXIETY
     Dosage: 0.5 mg, 3x/day
     Dates: start: 2004
  4. XANAX [Suspect]
     Indication: PANIC ATTACKS
  5. PREDNISOLONE [Suspect]
     Indication: WBC INCREASED
     Dosage: UNK
  6. LAMICTAL [Concomitant]
     Dosage: UNK
  7. SEROQUEL [Concomitant]
     Dosage: UNK
  8. DEMEROL [Concomitant]
     Dosage: UNK
  9. NEXIUM [Concomitant]
     Dosage: UNK
  10. FOLIC ACID [Concomitant]
     Dosage: UNK
  11. FLONASE [Concomitant]
     Dosage: UNK
  12. CYCLOBENZAPRINE [Concomitant]
     Dosage: UNK
  13. SYMBICORT [Concomitant]
     Dosage: UNK

REACTIONS (6)
  - Rheumatoid arthritis [Unknown]
  - Intervertebral disc degeneration [Unknown]
  - White blood cell count increased [Unknown]
  - Fibromyalgia [Unknown]
  - Osteoarthritis [Unknown]
  - Off label use [Unknown]
